FAERS Safety Report 5583546-2 (Version None)
Quarter: 2007Q4

REPORT INFORMATION
  Report Type: 
  Country: None (occurrence: None)
  Receive Date: 20071231
  Receipt Date: 20071220
  Transmission Date: 20080405
  Serious: Yes (Death)
  Sender: FDA-Public Use
  Company Number: 20074469

PATIENT
  Age: 58 Year
  Sex: Male

DRUGS (6)
  1. LIORESAL [Suspect]
     Indication: MUSCLE SPASTICITY
     Dosage: MCG, DAILY, INTRATHECAL
     Route: 037
  2. HYDROMORPHONE HCL [Concomitant]
  3. FENTANYL [Concomitant]
  4. CLONIDINE [Concomitant]
  5. BACLOFEN [Concomitant]
  6. DROPERIDOL [Concomitant]

REACTIONS (1)
  - PANCREATIC CARCINOMA [None]
